FAERS Safety Report 7170117-X (Version None)
Quarter: 2010Q4

REPORT INFORMATION
  Report Type: 
  Country: None (occurrence: None)
  Receive Date: 20101123
  Receipt Date: 20100813
  Transmission Date: 20110411
  Serious: No
  Sender: FDA-Public Use
  Company Number: 017215

PATIENT
  Age: 65 Year

DRUGS (6)
  1. CIMZIA [Suspect]
     Indication: RHEUMATOID ARTHRITIS
     Dosage: (400 MG 1X/4 WEEKS, STARTED CIMZIA IN FEBRUARY SUBCUTANEOUS)
     Route: 058
  2. MELOXICAM [Concomitant]
  3. ESTRADIOL W/NORETHISTERONE [Concomitant]
  4. TIMOLOL [Concomitant]
  5. RESTASIS [Concomitant]
  6. VALTREX [Concomitant]

REACTIONS (1)
  - ALOPECIA [None]
